FAERS Safety Report 5680192-7 (Version None)
Quarter: 2008Q1

REPORT INFORMATION
  Report Type: 
  Country: None (occurrence: None)
  Receive Date: 20080326
  Receipt Date: 20080324
  Transmission Date: 20080703
  Serious: Yes (Death, Other)
  Sender: FDA-Public Use
  Company Number: BE-BRISTOL-MYERS SQUIBB COMPANY-14124754

PATIENT
  Age: 74 Year
  Sex: Male

DRUGS (1)
  1. CEFEPIME [Suspect]
     Indication: PSEUDOMONAL SEPSIS

REACTIONS (3)
  - COMA [None]
  - MYOCLONUS [None]
  - VENTRICULAR TACHYCARDIA [None]
